FAERS Safety Report 7772061-3 (Version None)
Quarter: 2011Q3

REPORT INFORMATION
  Report Type: 
  Country: None (occurrence: None)
  Receive Date: 20110922
  Receipt Date: 20110720
  Transmission Date: 20111222
  Serious: Yes (Other)
  Sender: FDA-Public Use
  Company Number: US-ASTRAZENECA-2008UW11271

PATIENT
  Age: 923 Month
  Sex: Male
  Weight: 88.5 kg

DRUGS (8)
  1. SEROQUEL [Suspect]
     Indication: BIPOLAR I DISORDER
     Dosage: 100 MG TO 200 MG
     Route: 048
     Dates: start: 20030401, end: 20060301
  2. ASPIRIN [Concomitant]
     Dates: start: 20060401
  3. CRYSTALLOSE [Concomitant]
     Dosage: PRN
  4. SEROQUEL [Suspect]
     Route: 048
     Dates: start: 20060401
  5. PROCARDIA XL [Concomitant]
     Dates: start: 20060401
  6. HALDOL [Concomitant]
     Dates: start: 19980101, end: 20080101
  7. BENICAR ACT [Concomitant]
     Dosage: 20/12.5 MG DAILY
     Dates: start: 20060401
  8. ULTANE [Concomitant]
     Dates: start: 20060401

REACTIONS (4)
  - HYPERTENSION [None]
  - CEREBROVASCULAR ACCIDENT [None]
  - DIABETES MELLITUS [None]
  - RENAL DISORDER [None]
